FAERS Safety Report 22639592 (Version 1)
Quarter: 2023Q2

REPORT INFORMATION
  Report Type: Spontaneous
  Country: MA (occurrence: MA)
  Receive Date: 20230626
  Receipt Date: 20230626
  Transmission Date: 20230721
  Serious: Yes (Other)
  Sender: FDA-Public Use
  Company Number: MA-002147023-NVSC2023MA144521

PATIENT
  Age: 60 Year
  Sex: Female

DRUGS (1)
  1. KISQALI [Suspect]
     Active Substance: RIBOCICLIB
     Indication: Breast cancer
     Dosage: UNK
     Route: 065

REACTIONS (2)
  - Renal failure [Unknown]
  - Asthenia [Unknown]

NARRATIVE: CASE EVENT DATE: 20230621
